FAERS Safety Report 9586088 (Version 1)
Quarter: 2013Q4

REPORT INFORMATION
  Report Type: Report from Study
  Country: US (occurrence: US)
  Receive Date: 20131003
  Receipt Date: 20131003
  Transmission Date: 20140711
  Serious: Yes (Other)
  Sender: FDA-Public Use
  Company Number: US-ROCHE-1283071

PATIENT
  Sex: Female

DRUGS (6)
  1. HERCEPTIN [Suspect]
     Indication: BREAST CANCER
     Route: 065
     Dates: start: 201111, end: 201206
  2. ARIMIDEX [Concomitant]
     Route: 065
     Dates: end: 2011
  3. TAXOL [Concomitant]
     Route: 065
     Dates: start: 201111
  4. ABRAXANE [Concomitant]
  5. TYKERB [Concomitant]
  6. XGEVA [Concomitant]

REACTIONS (8)
  - Myocardial infarction [Unknown]
  - Coronary artery occlusion [Unknown]
  - Cardiotoxicity [Unknown]
  - Disease recurrence [Unknown]
  - Bronchitis [Unknown]
  - Diarrhoea [Unknown]
  - Hypersensitivity [Unknown]
  - Ejection fraction decreased [Unknown]
